FAERS Safety Report 18106006 (Version 1)
Quarter: 2020Q3

REPORT INFORMATION
  Report Type: Report from Study
  Country: CA (occurrence: CA)
  Receive Date: 20200803
  Receipt Date: 20200803
  Transmission Date: 20201103
  Serious: Yes (Other)
  Sender: FDA-Public Use
  Company Number: PHHY2017CA081931

PATIENT
  Age: 66 Year
  Sex: Male

DRUGS (6)
  1. SANDOSTATIN [Suspect]
     Active Substance: OCTREOTIDE ACETATE
  2. SANDOSTATIN [Suspect]
     Active Substance: OCTREOTIDE ACETATE
     Indication: METASTATIC CARCINOID TUMOUR
     Dosage: UNK UNK, TID
     Route: 058
     Dates: start: 20141106, end: 20141110
  3. SANDOSTATIN LAR DEPOT [Suspect]
     Active Substance: OCTREOTIDE ACETATE
  4. SANDOSTATIN [Suspect]
     Active Substance: OCTREOTIDE ACETATE
  5. SANDOSTATIN LAR DEPOT [Suspect]
     Active Substance: OCTREOTIDE ACETATE
     Indication: METASTATIC CARCINOID TUMOUR
     Dosage: 30 MG, QMO
     Route: 030
     Dates: start: 20141117
  6. SANDOSTATIN LAR DEPOT [Suspect]
     Active Substance: OCTREOTIDE ACETATE

REACTIONS (11)
  - Pruritus [Unknown]
  - Abdominal pain [Unknown]
  - Fatigue [Unknown]
  - Prostatomegaly [Unknown]
  - Blood pressure increased [Unknown]
  - Myalgia [Unknown]
  - Abdominal pain upper [Unknown]
  - Flatulence [Unknown]
  - Blister [Unknown]
  - Abdominal distension [Unknown]
  - Skin disorder [Unknown]

NARRATIVE: CASE EVENT DATE: 20170601
